FAERS Safety Report 7711377-3 (Version None)
Quarter: 2011Q3

REPORT INFORMATION
  Report Type: 
  Country: None (occurrence: None)
  Receive Date: 20110810
  Receipt Date: 20110803
  Transmission Date: 20111222
  Serious: Yes (Hospitalization)
  Sender: FDA-Public Use
  Company Number: 2011029422

PATIENT
  Age: 62 Year
  Sex: Male

DRUGS (5)
  1. PRIVIGEN [Suspect]
  2. PRIVIGEN [Suspect]
     Indication: LYMPHOMA
     Dosage: 60 G QD, 40 G QD, INTRAVENOUS
     Route: 042
     Dates: start: 20110722, end: 20110722
  3. PRIVIGEN [Suspect]
     Indication: LYMPHOMA
     Dosage: 60 G QD, 40 G QD, INTRAVENOUS
     Route: 042
     Dates: start: 20110723, end: 20110723
  4. VENLAFAXINE [Concomitant]
  5. LYRICA [Concomitant]

REACTIONS (7)
  - BRADYCARDIA [None]
  - HYPOTHERMIA [None]
  - PARAESTHESIA [None]
  - MALAISE [None]
  - DYSSTASIA [None]
  - NAUSEA [None]
  - HYPERHIDROSIS [None]
